FAERS Safety Report 10718868 (Version 1)
Quarter: 2015Q1

REPORT INFORMATION
  Report Type: Spontaneous
  Country: US (occurrence: US)
  Receive Date: 20150119
  Receipt Date: 20150119
  Transmission Date: 20150721
  Serious: No
  Sender: FDA-Public Use
  Company Number: US-UNITED THERAPEUTICS-UNT-2014-002295

PATIENT
  Age: 88 Year
  Sex: Male
  Weight: 73.47 kg

DRUGS (8)
  1. LETAIRIS [Concomitant]
     Active Substance: AMBRISENTAN
     Indication: PRODUCT USED FOR UNKNOWN INDICATION
  2. TYVASO [Suspect]
     Active Substance: TREPROSTINIL
     Indication: CARDIAC DISORDER
  3. TYVASO [Suspect]
     Active Substance: TREPROSTINIL
     Indication: LUNG DISORDER
  4. ADEMPAS [Suspect]
     Active Substance: RIOCIGUAT
     Indication: PRODUCT USED FOR UNKNOWN INDICATION
     Dosage: UNK
     Route: 065
     Dates: start: 20140609, end: 20140704
  5. TYVASO [Suspect]
     Active Substance: TREPROSTINIL
     Indication: ESSENTIAL HYPERTENSION
  6. TYVASO [Suspect]
     Active Substance: TREPROSTINIL
     Indication: ESSENTIAL HYPERTENSION
  7. REVATIO [Concomitant]
     Active Substance: SILDENAFIL CITRATE
     Indication: PRODUCT USED FOR UNKNOWN INDICATION
  8. TYVASO [Suspect]
     Active Substance: TREPROSTINIL
     Indication: PULMONARY ARTERIAL HYPERTENSION
     Dosage: 18-54 MICROGRAMS, QID
     Dates: start: 20110624

REACTIONS (6)
  - Vomiting [Unknown]
  - Abdominal distension [Recovered/Resolved]
  - Nausea [Recovering/Resolving]
  - Fatigue [Recovering/Resolving]
  - Abdominal pain [Recovering/Resolving]
  - Faecaloma [Unknown]

NARRATIVE: CASE EVENT DATE: 20140605
